FAERS Safety Report 8621873-2 (Version None)
Quarter: 2012Q3

REPORT INFORMATION
  Report Type: 
  Country: None (occurrence: None)
  Receive Date: 20120822
  Receipt Date: 20120822
  Transmission Date: 20120928
  Serious: Yes (Hospitalization)
  Sender: FDA-Public Use
  Company Number: None

PATIENT
  Age: 62 Year
  Sex: Female
  Weight: 58.0604 kg

DRUGS (1)
  1. MINOCYCLINE HCL [Suspect]
     Indication: ACNE
     Dosage: 100 MG BID PO
     Route: 048
     Dates: start: 20120712, end: 20120728

REACTIONS (8)
  - TOOTHACHE [None]
  - PRURITUS [None]
  - ARTHRALGIA [None]
  - ANTINUCLEAR ANTIBODY INCREASED [None]
  - RED BLOOD CELL SEDIMENTATION RATE INCREASED [None]
  - PYREXIA [None]
  - MYALGIA [None]
  - FATIGUE [None]
